FAERS Safety Report 14015507 (Version 1)
Quarter: 2017Q3

REPORT INFORMATION
  Report Type: Report from Study
  Country: None (occurrence: BR)
  Receive Date: 20170927
  Receipt Date: 20170927
  Transmission Date: 20171128
  Serious: Yes (Other)
  Sender: FDA-Public Use
  Company Number: BR-ABBVIE-16K-020-1736676-00

PATIENT
  Age: 19 Year
  Sex: Female
  Weight: 52 kg

DRUGS (6)
  1. HUMIRA [Suspect]
     Active Substance: ADALIMUMAB
     Dosage: LOADING DOSE: WEEK 2
     Route: 058
     Dates: start: 201605, end: 201605
  2. FOLIC ACID. [Concomitant]
     Active Substance: FOLIC ACID
     Indication: VITAMIN SUPPLEMENTATION
     Route: 048
     Dates: start: 201605
  3. HUMIRA [Suspect]
     Active Substance: ADALIMUMAB
     Dosage: MAINTENANCE DOSE
     Route: 058
     Dates: start: 2016
  4. FERROUS SULFATE. [Concomitant]
     Active Substance: FERROUS SULFATE
     Indication: VITAMIN SUPPLEMENTATION
     Route: 048
  5. HUMIRA [Suspect]
     Active Substance: ADALIMUMAB
     Indication: CROHN^S DISEASE
     Dosage: LOADING DOSE: WEEK 0
     Route: 058
     Dates: start: 20160504, end: 20160504
  6. AZATHIOPRINE. [Concomitant]
     Active Substance: AZATHIOPRINE
     Indication: IMMUNODEFICIENCY
     Dosage: ONE TABLET AND A HALF DAILY
     Route: 048
     Dates: start: 201511

REACTIONS (7)
  - Progesterone abnormal [Unknown]
  - Thyroid cyst [Not Recovered/Not Resolved]
  - Injection site pain [Recovered/Resolved]
  - Premature menopause [Unknown]
  - Menstruation irregular [Not Recovered/Not Resolved]
  - Weight increased [Not Recovered/Not Resolved]
  - Ultrasound abdomen abnormal [Unknown]

NARRATIVE: CASE EVENT DATE: 2016
